FAERS Safety Report 16884387 (Version 1)
Quarter: 2019Q4

REPORT INFORMATION
  Report Type: Spontaneous
  Country: US (occurrence: US)
  Receive Date: 20191004
  Receipt Date: 20191004
  Transmission Date: 20200122
  Serious: Yes (Other)
  Sender: FDA-Public Use
  Company Number: US-MYLANLABS-2019M1092207

PATIENT
  Sex: Male

DRUGS (10)
  1. DULOXETINE. [Suspect]
     Active Substance: DULOXETINE
     Indication: NEURALGIA
     Route: 065
  2. FENTANYL. [Concomitant]
     Active Substance: FENTANYL
     Indication: SEDATION
     Route: 042
  3. TRIAMCINOLONE ACETONIDE. [Concomitant]
     Active Substance: TRIAMCINOLONE ACETONIDE
     Indication: NEURALGIA
     Dosage: A TOTAL OF 3 TO 4 CC OF A 50:50 MIXTURE OF 40 MG/ML TRIAMCINOLONE ACETONIDE AND 0.25% BUPIVACAINE..
     Route: 065
     Dates: start: 201607, end: 201802
  4. VENLAFAXINE [Suspect]
     Active Substance: VENLAFAXINE HYDROCHLORIDE
     Indication: NEURALGIA
     Route: 065
  5. BUPIVACAINE. [Concomitant]
     Active Substance: BUPIVACAINE
     Indication: NEURALGIA
     Dosage: ^DIAGNOSTIC/THERAPEUTIC^ TRIAL OF A LEFT ORBITAL..
     Route: 065
     Dates: start: 201605
  6. GABAPENTIN. [Suspect]
     Active Substance: GABAPENTIN
     Indication: NEURALGIA
     Route: 065
  7. NORTRIPTYLINE [Suspect]
     Active Substance: NORTRIPTYLINE
     Indication: NEURALGIA
     Route: 065
  8. BUPIVACAINE. [Concomitant]
     Active Substance: BUPIVACAINE
     Dosage: A TOTAL OF 3 TO 4 CC OF A 50:50 MIXTURE OF 40 MG/ML TRIAMCINOLONE ACETONIDE AND 0.25% BUPIVACAINE..
     Route: 065
     Dates: start: 201607, end: 201802
  9. PREGABALIN. [Suspect]
     Active Substance: PREGABALIN
     Indication: NEURALGIA
     Route: 065
  10. OZURDEX [Concomitant]
     Active Substance: DEXAMETHASONE
     Indication: NEURALGIA
     Dosage: DEXAMETHASONE IMPLANT, WHICH IS AN EXTENDED RELEASE INTRAOCULAR STEROID IMPLANT, WAS INJECTED..
     Route: 031
     Dates: start: 201807, end: 201902

REACTIONS (1)
  - Drug ineffective [Unknown]
